FAERS Safety Report 7035300-2 (Version None)
Quarter: 2010Q4

REPORT INFORMATION
  Report Type: 
  Country: None (occurrence: None)
  Receive Date: 20101008
  Receipt Date: 20100928
  Transmission Date: 20110411
  Serious: Yes (Hospitalization)
  Sender: FDA-Public Use
  Company Number: B0676958A

PATIENT
  Age: 46 Year
  Sex: Male

DRUGS (2)
  1. AVANDAMET [Suspect]
     Dosage: 4MG TWICE PER DAY
     Route: 048
     Dates: start: 20040101
  2. FENOFIBRATE [Concomitant]

REACTIONS (3)
  - CHEST DISCOMFORT [None]
  - CORONARY ARTERY STENOSIS [None]
  - MALAISE [None]
